FAERS Safety Report 14119021 (Version 1)
Quarter: 2017Q4

REPORT INFORMATION
  Report Type: Spontaneous
  Country: US (occurrence: None)
  Receive Date: 20171023
  Receipt Date: 20171023
  Transmission Date: 20180321
  Serious: Yes (Hospitalization)
  Sender: FDA-Public Use
  Company Number: None

PATIENT
  Age: 27 Year
  Sex: Male

DRUGS (1)
  1. CREON [Suspect]
     Active Substance: PANCRELIPASE AMYLASE\PANCRELIPASE LIPASE\PANCRELIPASE PROTEASE
     Indication: CYSTIC FIBROSIS
     Dosage: DATES OF USE - HE HAS BEEN OUT X 2 WEEKS - FIRST FILLED 6/2016?FREQUENCY - 5 TIMES DAILY
     Route: 048
     Dates: start: 201606

REACTIONS (1)
  - Therapy cessation [None]
